FAERS Safety Report 6143141-3 (Version None)
Quarter: 2009Q2

REPORT INFORMATION
  Report Type: 
  Country: None (occurrence: None)
  Receive Date: 20090403
  Receipt Date: 20090330
  Transmission Date: 20091009
  Serious: Yes (Hospitalization)
  Sender: FDA-Public Use
  Company Number: JP-BAYER-200910956BYL

PATIENT
  Age: 75 Year
  Sex: Male
  Weight: 53 kg

DRUGS (2)
  1. NEXAVAR [Suspect]
     Indication: RENAL CELL CARCINOMA STAGE IV
     Dosage: UNIT DOSE: 200 MG
     Route: 048
     Dates: start: 20081006, end: 20081031
  2. NEXAVAR [Suspect]
     Dosage: UNIT DOSE: 200 MG
     Route: 048
     Dates: start: 20081114, end: 20090325

REACTIONS (5)
  - ERYTHEMA [None]
  - HAEMOTHORAX [None]
  - HYPERTENSION [None]
  - LIPASE INCREASED [None]
  - RASH [None]
